FAERS Safety Report 9193882 (Version 2)
Quarter: 2013Q1

REPORT INFORMATION
  Report Type: Spontaneous
  Country: CZ (occurrence: CZ)
  Receive Date: 20130327
  Receipt Date: 20130329
  Transmission Date: 20140127
  Serious: Yes (Other)
  Sender: FDA-Public Use
  Company Number: CZ-PFIZER INC-2013091596

PATIENT
  Age: 70 Year
  Sex: Male

DRUGS (3)
  1. FLUOROURACIL [Suspect]
     Indication: RECTOSIGMOID CANCER
     Dosage: CYCLIC
     Dates: start: 200812, end: 200903
  2. OXALIPLATIN [Suspect]
     Indication: RECTOSIGMOID CANCER
     Dosage: CYCLIC
     Dates: start: 200812, end: 200903
  3. CALCIUM FOLINATE [Suspect]
     Indication: RECTOSIGMOID CANCER
     Dosage: CYCLIC
     Dates: start: 200812, end: 200903

REACTIONS (1)
  - Ileus paralytic [Unknown]
